FAERS Safety Report 6368845-9 (Version None)
Quarter: 2009Q3

REPORT INFORMATION
  Report Type: 
  Country: None (occurrence: None)
  Receive Date: 20090918
  Receipt Date: 20090918
  Transmission Date: 20100115
  Serious: No
  Sender: FDA-Public Use
  Company Number: None

PATIENT
  Age: 52 Year
  Weight: 113.3993 kg

DRUGS (4)
  1. EQUATE TRIPLE ANTIBIOTIC CREAM CLAY-PARKS LAB. INC [Suspect]
     Indication: BLISTER
     Dosage: TEASPOON FOR EACH AREA -2- N/A TOP  (1 APPLICATION)
     Route: 061
     Dates: start: 20060628, end: 20060628
  2. EQUATE TRIPLE ANTIBIOTIC CREAM CLAY-PARKS LAB. INC [Suspect]
     Indication: SUNBURN
     Dosage: TEASPOON FOR EACH AREA -2- N/A TOP  (1 APPLICATION)
     Route: 061
     Dates: start: 20060628, end: 20060628
  3. ANTIBIOTICS [Concomitant]
  4. PRESSURE BOOTS [Concomitant]

REACTIONS (7)
  - CARDIOVASCULAR DISORDER [None]
  - PAIN [None]
  - SCAR [None]
  - SKIN DISCOLOURATION [None]
  - SKIN INFECTION [None]
  - SWELLING [None]
  - THERMAL BURN [None]
